FAERS Safety Report 19579244 (Version 1)
Quarter: 2021Q3

REPORT INFORMATION
  Report Type: Spontaneous
  Country: US (occurrence: US)
  Receive Date: 20210719
  Receipt Date: 20210719
  Transmission Date: 20211014
  Serious: Yes (Hospitalization)
  Sender: FDA-Public Use
  Company Number: US-NOVOPROD-772722

PATIENT
  Sex: Female

DRUGS (2)
  1. NOVOFINE PLUS 4MM (32G) [Concomitant]
     Indication: DEVICE THERAPY
  2. OZEMPIC [Suspect]
     Active Substance: SEMAGLUTIDE
     Indication: PRODUCT USED FOR UNKNOWN INDICATION
     Dosage: 0.25 MG, QW
     Route: 058
     Dates: start: 202008

REACTIONS (5)
  - Diarrhoea [Not Recovered/Not Resolved]
  - Vomiting [Recovered/Resolved]
  - Inappropriate schedule of product administration [Unknown]
  - Extra dose administered [Recovered/Resolved]
  - Anger [Unknown]

NARRATIVE: CASE EVENT DATE: 2020
